FAERS Safety Report 15924323 (Version 3)
Quarter: 2019Q3

REPORT INFORMATION
  Report Type: Spontaneous
  Country: PT (occurrence: PT)
  Receive Date: 20190206
  Receipt Date: 20190712
  Transmission Date: 20191004
  Serious: Yes (Other)
  Sender: FDA-Public Use
  Company Number: PT-AUROBINDO-AUR-APL-2019-005709

PATIENT

DRUGS (4)
  1. ACEMETACIN [Suspect]
     Active Substance: ACEMETACIN
     Dosage: 120 MILLIGRAM, ONCE A DAY(60 MILLIGRAM, BID)
     Route: 065
     Dates: start: 201309, end: 201402
  2. ACEMETACIN [Suspect]
     Active Substance: ACEMETACIN
     Indication: LUMBAR HERNIA
     Dosage: UNK
     Route: 065
     Dates: start: 201309
  3. METAMIZOLE [Suspect]
     Active Substance: METAMIZOLE
     Indication: LUMBAR HERNIA
     Dosage: 1150 MILLIGRAM, ONCE A DAY,575 MILLIGRAM, BID
     Route: 065
     Dates: start: 201309, end: 201402
  4. TRAMADOL+PARACETAMOL 37.5/325MG [Suspect]
     Active Substance: ACETAMINOPHEN\TRAMADOL
     Indication: LUMBAR HERNIA
     Dosage: UNK, ONCE A DAY
     Route: 065
     Dates: start: 201309, end: 201402

REACTIONS (7)
  - Atelectasis [Recovered/Resolved]
  - Hepatic failure [Recovered/Resolved]
  - Choluria [Recovered/Resolved]
  - Hepatitis acute [Recovered/Resolved]
  - Hepatitis cholestatic [Recovered/Resolved]
  - Necrosis [Recovered/Resolved]
  - Pruritus [Recovered/Resolved]

NARRATIVE: CASE EVENT DATE: 201402
